FAERS Safety Report 8136194-4 (Version None)
Quarter: 2012Q1

REPORT INFORMATION
  Report Type: 
  Country: None (occurrence: None)
  Receive Date: 20120214
  Receipt Date: 20120202
  Transmission Date: 20120608
  Serious: Yes (Hospitalization)
  Sender: FDA-Public Use
  Company Number: JP-TEVA-2011004803

PATIENT
  Sex: Male
  Weight: 69.8 kg

DRUGS (7)
  1. FILGRASTIM [Concomitant]
     Dates: start: 20110122, end: 20110218
  2. RAMATROBAN [Concomitant]
     Dates: start: 20110117, end: 20110227
  3. EBASTINE [Concomitant]
     Dates: start: 20110117, end: 20110227
  4. BENDAMUSTINE [Suspect]
     Indication: B-CELL LYMPHOMA
     Route: 042
     Dates: start: 20110113
  5. DEFERASIROX [Concomitant]
  6. FLUTICASONE PROPIONATE [Concomitant]
     Dates: start: 20110117, end: 20110227
  7. ZOLPIDEM [Concomitant]
     Indication: INSOMNIA
     Dates: end: 20110602

REACTIONS (2)
  - LYMPHOCYTE COUNT DECREASED [None]
  - LIVER DISORDER [None]
